FAERS Safety Report 6964557-9 (Version None)
Quarter: 2010Q3

REPORT INFORMATION
  Report Type: 
  Country: None (occurrence: None)
  Receive Date: 20100903
  Receipt Date: 20100804
  Transmission Date: 20110219
  Serious: Yes (Hospitalization, Other)
  Sender: FDA-Public Use
  Company Number: US-BAYER-201023610NA

PATIENT
  Age: 25 Year
  Sex: Female
  Weight: 68 kg

DRUGS (5)
  1. YAZ [Suspect]
     Indication: CONTRACEPTION
     Route: 048
     Dates: start: 20081208, end: 20090513
  2. ASCORBIC ACID [Concomitant]
  3. ALEVE (CAPLET) [Concomitant]
  4. DARVOCET [Concomitant]
     Indication: PAIN
     Dosage: N-100 AS NEEDED
  5. PHENERGAN [Concomitant]
     Indication: NAUSEA

REACTIONS (6)
  - ANAEMIA [None]
  - CHEST DISCOMFORT [None]
  - HAEMATURIA [None]
  - HAEMOLYSIS [None]
  - PELVIC VENOUS THROMBOSIS [None]
  - PULMONARY MICROEMBOLI [None]
